FAERS Safety Report 17871134 (Version 1)
Quarter: 2020Q2

REPORT INFORMATION
  Report Type: Spontaneous
  Country: US (occurrence: US)
  Receive Date: 20200608
  Receipt Date: 20200608
  Transmission Date: 20200714
  Serious: Yes (Disabling)
  Sender: FDA-Public Use
  Company Number: None

PATIENT
  Age: 43 Year
  Sex: Female
  Weight: 85.5 kg

DRUGS (5)
  1. ASPIRIN. [Concomitant]
     Active Substance: ASPIRIN
  2. OXTELLAR XR [Suspect]
     Active Substance: OXCARBAZEPINE
     Indication: EPILEPSY
     Dosage: ?          QUANTITY:9 TABLET(S);?
     Route: 048
     Dates: start: 20191126, end: 20200608
  3. DEPAKOTE [Concomitant]
     Active Substance: DIVALPROEX SODIUM
  4. OXTELLAR XR [Concomitant]
     Active Substance: OXCARBAZEPINE
  5. FOLIC ACID. [Concomitant]
     Active Substance: FOLIC ACID

REACTIONS (3)
  - Diplopia [None]
  - Balance disorder [None]
  - Vertigo [None]

NARRATIVE: CASE EVENT DATE: 20200608
